FAERS Safety Report 5609130-X (Version None)
Quarter: 2008Q1

REPORT INFORMATION
  Report Type: 
  Country: None (occurrence: None)
  Receive Date: 20080130
  Receipt Date: 20080130
  Transmission Date: 20080703
  Serious: Yes (Other)
  Sender: FDA-Public Use
  Company Number: None

PATIENT
  Sex: Male

DRUGS (1)
  1. ZOMETA [Suspect]
     Indication: NEOPLASM MALIGNANT
     Dosage: ? 1 QMO IV
     Route: 042
     Dates: start: 20040901, end: 20060301

REACTIONS (4)
  - LOOSE TOOTH [None]
  - ORAL DISORDER [None]
  - OSTEONECROSIS [None]
  - SINUS DISORDER [None]
